FAERS Safety Report 8876404 (Version 1)
Quarter: 2012Q4

REPORT INFORMATION
  Report Type: 
  Country: US (occurrence: US)
  Receive Date: 20121023
  Receipt Date: 20121023
  Transmission Date: 20130627
  Serious: No
  Sender: FDA-Public Use
  Company Number: US-ASTELLAS-2012US006995

PATIENT
  Age: 77 Year
  Sex: Female

DRUGS (2)
  1. LEXISCAN [Suspect]
     Indication: SCAN MYOCARDIAL PERFUSION
     Dosage: UNK
     Route: 065
     Dates: start: 201111, end: 201111
  2. CARDIOLITE [Suspect]
     Indication: CARDIAC STRESS TEST
     Dosage: UNK
     Route: 065

REACTIONS (3)
  - Cheilitis [Not Recovered/Not Resolved]
  - Impetigo [Unknown]
  - Headache [Unknown]
